FAERS Safety Report 12989071 (Version 3)
Quarter: 2017Q1

REPORT INFORMATION
  Report Type: Spontaneous
  Country: DK (occurrence: DK)
  Receive Date: 20161201
  Receipt Date: 20170329
  Transmission Date: 20170428
  Serious: Yes (Life-Threatening, Hospitalization)
  Sender: FDA-Public Use
  Company Number: PHHY2016DK159998

PATIENT
  Age: 20 Year
  Sex: Female

DRUGS (2)
  1. MENINGOCOCCAL POLYSACCHARIDE VACCINE A NOS [Concomitant]
     Active Substance: MENINGOCOCCAL POLYSACCHARIDE VACCINE A\NEISSERIA MENINGITIDIS GROUP A CAPSULAR POLYSACCHARIDE ANTIGEN
     Indication: IMMUNISATION
     Dosage: 0.5 ML, TOTAL SINGLE
     Route: 030
     Dates: start: 20150921, end: 20150921
  2. AMLODIPINE [Suspect]
     Active Substance: AMLODIPINE BESYLATE
     Indication: SUICIDE ATTEMPT
     Dosage: 1000 MG, TOTAL SINGLE
     Route: 065

REACTIONS (5)
  - Suicide attempt [Recovered/Resolved with Sequelae]
  - Acute kidney injury [Unknown]
  - Cardiac arrest [Recovered/Resolved]
  - Overdose [Unknown]
  - Brain injury [Unknown]

NARRATIVE: CASE EVENT DATE: 20160205
